FAERS Safety Report 12781370 (Version 2)
Quarter: 2016Q4

REPORT INFORMATION
  Report Type: Report from Study
  Country: None (occurrence: US)
  Receive Date: 20160926
  Receipt Date: 20161118
  Transmission Date: 20170207
  Serious: Yes (Hospitalization)
  Sender: FDA-Public Use
  Company Number: US-ABBVIE-16K-163-1737293-00

PATIENT
  Age: 35 Year
  Sex: Female
  Weight: 72.64 kg

DRUGS (1)
  1. HUMIRA [Suspect]
     Active Substance: ADALIMUMAB
     Indication: CROHN^S DISEASE
     Route: 058
     Dates: start: 20160527, end: 20160907

REACTIONS (5)
  - Device occlusion [Recovered/Resolved]
  - Crohn^s disease [Not Recovered/Not Resolved]
  - Vesical fistula [Not Recovered/Not Resolved]
  - Abdominal abscess [Recovering/Resolving]
  - Pain [Recovering/Resolving]

NARRATIVE: CASE EVENT DATE: 2016
